FAERS Safety Report 5321057-X (Version None)
Quarter: 2007Q2

REPORT INFORMATION
  Report Type: 
  Country: None (occurrence: None)
  Receive Date: 20070507
  Receipt Date: 20070507
  Transmission Date: 20071010
  Serious: Yes (Death)
  Sender: FDA-Public Use
  Company Number: None

PATIENT
  Sex: Male
  Weight: 176.9028 kg

DRUGS (2)
  1. METHADONE HCL [Suspect]
     Indication: DRUG DEPENDENCE
     Dosage: 10 MG.  TOOK 4 A TIME
     Dates: start: 20070116, end: 20070118
  2. XANAX [Concomitant]

REACTIONS (4)
  - ACCIDENTAL DEATH [None]
  - DRUG ABUSER [None]
  - DRUG TOXICITY [None]
  - RESPIRATORY ARREST [None]
